FAERS Safety Report 13689752 (Version 2)
Quarter: 2017Q3

REPORT INFORMATION
  Report Type: Report from Study
  Country: US (occurrence: US)
  Receive Date: 20170626
  Receipt Date: 20170912
  Transmission Date: 20171127
  Serious: Yes (Death)
  Sender: FDA-Public Use
  Company Number: US-BAYER-2017-065962

PATIENT
  Age: 71 Year
  Sex: Female
  Weight: 112.47 kg

DRUGS (25)
  1. ASPIRIN [ACETYLSALICYLIC ACID] [Concomitant]
     Active Substance: ASPIRIN
     Dosage: 81 MG, QD
     Route: 048
  2. DICLOFENAC SODIUM [Concomitant]
     Dosage: UNK
  3. LIDODERM [Concomitant]
     Dosage: UNK
  4. XOPENEX [Concomitant]
     Active Substance: LEVALBUTEROL HYDROCHLORIDE
     Dosage: UNK
  5. ADEMPAS [Suspect]
     Active Substance: RIOCIGUAT
     Indication: PULMONARY ARTERIAL HYPERTENSION
     Dosage: 0.5 MG, TID
     Route: 048
  6. CYANOCOBALAMIN [Concomitant]
     Dosage: 100 ?G/ML, OM
  7. ERGOCALCIFEROL. [Concomitant]
     Active Substance: ERGOCALCIFEROL
     Dosage: 50000 UNIT
     Route: 048
  8. FUROSEMIDE [Concomitant]
     Dosage: 40 MG, QOD
     Route: 048
  9. LEVOCETIRIZINE DIHYDROCHLORIDE. [Concomitant]
     Active Substance: LEVOCETIRIZINE DIHYDROCHLORIDE
     Dosage: 5 MG, QD
     Route: 048
  10. LOSARTAN POTASSIUM. [Concomitant]
     Active Substance: LOSARTAN POTASSIUM
     Dosage: 50 MG, QD
     Route: 048
  11. TICAGRELOR. [Concomitant]
     Active Substance: TICAGRELOR
     Dosage: 90 MG, BID
     Route: 048
  12. CARVEDILOL [Concomitant]
     Dosage: 6.25 MG, BID
     Route: 048
  13. ONDANSETRON [Concomitant]
     Active Substance: ONDANSETRON
     Indication: NAUSEA
     Dosage: 4 MG, PRN
     Route: 048
  14. POTASSIUM CHLORIDE. [Concomitant]
     Active Substance: POTASSIUM CHLORIDE
     Dosage: UNK
     Route: 048
  15. TIZANIDINE. [Concomitant]
     Active Substance: TIZANIDINE
     Dosage: 2 MG, PRN
     Route: 048
  16. PANTOPRAZOLE SODIUM. [Concomitant]
     Active Substance: PANTOPRAZOLE SODIUM
     Dosage: 40 MG, QD
     Route: 048
  17. SPIRONOLACTONE [Concomitant]
     Dosage: 25 MG, QD
     Route: 048
  18. ADEMPAS [Suspect]
     Active Substance: RIOCIGUAT
     Indication: PULMONARY ARTERIAL HYPERTENSION
     Dosage: 1 MG, TID
     Route: 048
  19. ADEMPAS [Suspect]
     Active Substance: RIOCIGUAT
     Indication: PULMONARY ARTERIAL HYPERTENSION
     Dosage: 1.5 MG, TID
     Route: 048
     Dates: start: 20170202
  20. GABAPENTIN [Concomitant]
     Dosage: 100 MG, BID
     Route: 048
  21. HYDROCODONE [Concomitant]
     Active Substance: HYDROCODONE
     Indication: PAIN
     Dosage: 7.5 MG, TID
     Route: 048
  22. ZYRTEC [Concomitant]
     Active Substance: CETIRIZINE HYDROCHLORIDE
     Dosage: 10 MG, QD
     Route: 048
  23. ADEMPAS [Suspect]
     Active Substance: RIOCIGUAT
     Indication: PULMONARY ARTERIAL HYPERTENSION
     Dosage: 1.5 MG, TID
     Route: 048
  24. MIRABEGRON [Concomitant]
     Active Substance: MIRABEGRON
     Dosage: 25 MG, UNK
     Route: 048
  25. RESTASIS [Concomitant]
     Active Substance: CYCLOSPORINE
     Dosage: UNK

REACTIONS (8)
  - Pyrexia [Unknown]
  - Arthralgia [Unknown]
  - Diarrhoea [Unknown]
  - Death [Fatal]
  - Headache [None]
  - Fatigue [Unknown]
  - Dyspnoea [Unknown]
  - Diarrhoea [None]

NARRATIVE: CASE EVENT DATE: 201702
